FAERS Safety Report 22027018 (Version 2)
Quarter: 2023Q1

REPORT INFORMATION
  Report Type: Spontaneous
  Country: AT (occurrence: None)
  Receive Date: 20230223
  Receipt Date: 20230313
  Transmission Date: 20230418
  Serious: Yes (Death)
  Sender: FDA-Public Use
  Company Number: AT-ROCHE-3250081

PATIENT
  Age: 81 Year
  Sex: Male
  Weight: 55 kg

DRUGS (6)
  1. COTELLIC [Suspect]
     Active Substance: COBIMETINIB
     Indication: Acute myeloid leukaemia recurrent
     Route: 048
     Dates: start: 20221224, end: 20221228
  2. AMLODIPINE [Concomitant]
     Active Substance: AMLODIPINE BESYLATE
     Route: 048
  3. VALACYCLOVIR HYDROCHLORIDE [Concomitant]
     Active Substance: VALACYCLOVIR HYDROCHLORIDE
     Route: 048
  4. TAMSULOSIN [Concomitant]
     Active Substance: TAMSULOSIN
     Route: 048
  5. PANTOPRAZOLE [Concomitant]
     Active Substance: PANTOPRAZOLE
     Route: 048
  6. VITAMINS WITH MINERALS [Concomitant]
     Active Substance: MINERALS\VITAMINS
     Dosage: 600 MG/400 IU
     Route: 048

REACTIONS (7)
  - Death [Fatal]
  - Off label use [Unknown]
  - Disease progression [Fatal]
  - Therapeutic product ineffective [Fatal]
  - Febrile infection [Fatal]
  - Nausea [Recovered/Resolved]
  - Vomiting [Unknown]

NARRATIVE: CASE EVENT DATE: 20221224
